FAERS Safety Report 9169555 (Version 7)
Quarter: 2014Q2

REPORT INFORMATION
  Report Type: Spontaneous
  Country: US (occurrence: US)
  Receive Date: 20130318
  Receipt Date: 20140411
  Transmission Date: 20141212
  Serious: Yes (Hospitalization, Other)
  Sender: FDA-Public Use
  Company Number: US-009507513-1303USA007584

PATIENT
  Sex: Female
  Weight: 61.22 kg

DRUGS (7)
  1. FOSAMAX [Suspect]
     Indication: OSTEOPOROSIS PROPHYLAXIS
     Dosage: 70 MG, QW
     Route: 048
     Dates: start: 200208, end: 201004
  2. FOSAMAX [Suspect]
     Indication: OSTEOPOROSIS
     Dosage: 35 MG, QW
     Route: 048
  3. FOSAMAX PLUS D [Suspect]
     Dosage: 1 DF, QW
     Route: 048
  4. ALENDRONATE SODIUM [Suspect]
  5. GLYBURIDE [Concomitant]
     Indication: TYPE 2 DIABETES MELLITUS
  6. METFORMIN [Concomitant]
     Indication: TYPE 2 DIABETES MELLITUS
     Dosage: 500 MG, BID
  7. ACTOS [Concomitant]
     Indication: TYPE 2 DIABETES MELLITUS
     Dosage: 30 MG, UNK

REACTIONS (28)
  - Vitamin B12 deficiency [Unknown]
  - Thrombocytopenia [Unknown]
  - Hypertension [Unknown]
  - Blood cholesterol increased [Unknown]
  - Hypothyroidism [Unknown]
  - Osteoarthritis [Unknown]
  - Electrocardiogram Q wave abnormal [Unknown]
  - Epicondylitis [Unknown]
  - Hyperlipidaemia [Unknown]
  - Cardiac murmur [Unknown]
  - Hyperglycaemia [Unknown]
  - Hypokalaemia [Unknown]
  - Nitrite urine present [Unknown]
  - Asthenia [Unknown]
  - Arthralgia [Unknown]
  - Gastritis [Unknown]
  - Femur fracture [Recovered/Resolved]
  - Femur fracture [Recovered/Resolved]
  - Intramedullary rod insertion [Unknown]
  - Intramedullary rod insertion [Unknown]
  - Anaemia postoperative [Unknown]
  - Impaired healing [Unknown]
  - Low turnover osteopathy [Unknown]
  - Herpes zoster [Unknown]
  - Fall [Unknown]
  - Fall [Unknown]
  - Osteopenia [Unknown]
  - Hypokalaemia [Unknown]
